FAERS Safety Report 7764142-5 (Version None)
Quarter: 2011Q3

REPORT INFORMATION
  Report Type: 
  Country: None (occurrence: None)
  Receive Date: 20110902
  Receipt Date: 20110902
  Transmission Date: 20111222
  Serious: Yes (Other)
  Sender: FDA-Public Use
  Company Number: None

PATIENT
  Sex: Male
  Weight: 88.905 kg

DRUGS (1)
  1. SALAGEN [Suspect]
     Indication: DRY MOUTH
     Dosage: 5 MG 1 PO BID ORAL
     Route: 048
     Dates: start: 20100101, end: 20100202

REACTIONS (5)
  - DRUG INTOLERANCE [None]
  - LETHARGY [None]
  - PRODUCT SUBSTITUTION ISSUE [None]
  - NAUSEA [None]
  - VOMITING [None]
